FAERS Safety Report 5194466-X (Version None)
Quarter: 2006Q4

REPORT INFORMATION
  Report Type: 
  Country: None (occurrence: None)
  Receive Date: 20061221
  Receipt Date: 20061205
  Transmission Date: 20070319
  Serious: Yes (Disabling)
  Sender: FDA-Public Use
  Company Number: 6027981

PATIENT
  Age: 83 Year
  Sex: Female

DRUGS (1)
  1. SOTALOL HCL [Suspect]
     Indication: ARRHYTHMIA
     Dosage: 80,000 MG (40 MG, 2 IN 1 D), ORAL
     Route: 048
     Dates: start: 20060801

REACTIONS (3)
  - COMMUNICATION DISORDER [None]
  - DEAFNESS [None]
  - DIZZINESS [None]
